FAERS Safety Report 9426752 (Version 1)
Quarter: 2013Q3

REPORT INFORMATION
  Report Type: Spontaneous
  Country: US (occurrence: US)
  Receive Date: 20130730
  Receipt Date: 20130730
  Transmission Date: 20140515
  Serious: No
  Sender: FDA-Public Use
  Company Number: US-SANOFI-AVENTIS-2012SA059096

PATIENT
  Sex: 0

DRUGS (1)
  1. AMBIEN [Suspect]
     Indication: NIGHTMARE
     Route: 048

REACTIONS (3)
  - Nightmare [Recovering/Resolving]
  - Condition aggravated [Recovering/Resolving]
  - Off label use [Unknown]
